FAERS Safety Report 5336119-0 (Version None)
Quarter: 2007Q2

REPORT INFORMATION
  Report Type: 
  Country: None (occurrence: None)
  Receive Date: 20070302
  Receipt Date: 20061115
  Transmission Date: 20071010
  Serious: No
  Sender: FDA-Public Use
  Company Number: PHEH2006US14272

PATIENT
  Age: 72 Year
  Sex: Female

DRUGS (1)
  1. ENABLEX [Suspect]
     Indication: HYPERTONIC BLADDER
     Dosage: 15 MG, ONCE/SINGLE
     Dates: start: 20061115, end: 20061115

REACTIONS (3)
  - BLOOD GLUCOSE DECREASED [None]
  - DYSPEPSIA [None]
  - STOMACH DISCOMFORT [None]
